FAERS Safety Report 7707600-1 (Version None)
Quarter: 2011Q3

REPORT INFORMATION
  Report Type: 
  Country: None (occurrence: None)
  Receive Date: 20110824
  Receipt Date: 20110816
  Transmission Date: 20111222
  Serious: Yes (Life-Threatening, Hospitalization)
  Sender: FDA-Public Use
  Company Number: US-ALLERGAN-1103179US

PATIENT
  Age: 64 Year
  Sex: Female

DRUGS (8)
  1. ACIPHEX [Concomitant]
     Indication: GASTROOESOPHAGEAL REFLUX DISEASE
     Dosage: UNK
     Route: 048
     Dates: start: 20081010
  2. BOTULINUM TOXIN TYPE A [Suspect]
     Dosage: UNK UNITS
     Route: 030
     Dates: start: 20100820, end: 20100820
  3. BOTULINUM TOXIN TYPE A [Suspect]
     Indication: TORTICOLLIS
     Dosage: 240 UNITS, SINGLE
     Route: 030
     Dates: start: 20110218, end: 20110218
  4. BOTULINUM TOXIN TYPE A [Suspect]
     Dosage: UNK UNITS
     Route: 030
     Dates: start: 20101119, end: 20101119
  5. BOTULINUM TOXIN TYPE A [Suspect]
     Dosage: 100 UNK, SINGLE
     Dates: start: 20091006, end: 20091006
  6. PANTOPRAZOLE [Concomitant]
     Indication: PRODUCT USED FOR UNKNOWN INDICATION
     Dosage: 40 MG, QD
     Route: 048
     Dates: start: 20090824
  7. BOTULINUM TOXIN TYPE A [Suspect]
     Dosage: UNK UNITS
     Route: 030
     Dates: start: 20100126, end: 20100126
  8. HYDROCORTISONE [Concomitant]
     Indication: PRODUCT USED FOR UNKNOWN INDICATION
     Dosage: 0.2 MG, QD
     Route: 048
     Dates: start: 20090824

REACTIONS (1)
  - RESPIRATORY ARREST [None]
